FAERS Safety Report 6214709-0 (Version None)
Quarter: 2009Q2

REPORT INFORMATION
  Report Type: 
  Country: None (occurrence: None)
  Receive Date: 20090602
  Receipt Date: 20090519
  Transmission Date: 20091009
  Serious: Yes (Other)
  Sender: FDA-Public Use
  Company Number: PAR_02996_2009

PATIENT
  Age: 50 Year
  Sex: Male

DRUGS (1)
  1. CARBERGOLINE (CABERGOLINE) [Suspect]
     Indication: PROLACTINOMA
     Dosage: (0.5 MG 2X/WEEK)

REACTIONS (8)
  - ABNORMAL BEHAVIOUR [None]
  - BLOOD PROLACTIN INCREASED [None]
  - BLOOD TESTOSTERONE DECREASED [None]
  - ECONOMIC PROBLEM [None]
  - HYPERSEXUALITY [None]
  - LIBIDO INCREASED [None]
  - NO THERAPEUTIC RESPONSE [None]
  - PATHOLOGICAL GAMBLING [None]
